FAERS Safety Report 15888269 (Version 1)
Quarter: 2019Q1

REPORT INFORMATION
  Report Type: Spontaneous
  Country: US (occurrence: US)
  Receive Date: 20190129
  Receipt Date: 20190129
  Transmission Date: 20190417
  Serious: No
  Sender: FDA-Public Use
  Company Number: None

PATIENT
  Age: 43 Year
  Sex: Female
  Weight: 81.65 kg

DRUGS (3)
  1. MIRENA [Suspect]
     Active Substance: LEVONORGESTREL
  2. MULTIVITAMINS [Concomitant]
     Active Substance: VITAMINS
  3. CENTRUM MULTIVITAMINS [Concomitant]
     Active Substance: VITAMINS

REACTIONS (5)
  - Asthenia [None]
  - Vaginal haemorrhage [None]
  - Weight increased [None]
  - Headache [None]
  - Libido decreased [None]

NARRATIVE: CASE EVENT DATE: 20160801
